FAERS Safety Report 15948063 (Version 1)
Quarter: 2019Q1

REPORT INFORMATION
  Report Type: Spontaneous
  Country: US (occurrence: US)
  Receive Date: 20190211
  Receipt Date: 20190211
  Transmission Date: 20190417
  Serious: No
  Sender: FDA-Public Use
  Company Number: US-BEH-2019099384

PATIENT
  Age: 25 Year
  Sex: Female
  Weight: 87.75 kg

DRUGS (1)
  1. HIZENTRA [Suspect]
     Active Substance: HUMAN IMMUNOGLOBULIN G
     Indication: PRODUCT USED FOR UNKNOWN INDICATION
     Dosage: 10 G, QW
     Route: 065
     Dates: start: 201803

REACTIONS (2)
  - Weight increased [Unknown]
  - Infusion site discolouration [Unknown]
